FAERS Safety Report 4778158-4 (Version None)
Quarter: 2005Q3

REPORT INFORMATION
  Report Type: 
  Country: None (occurrence: None)
  Receive Date: 20050926
  Receipt Date: 20050913
  Transmission Date: 20060218
  Serious: No
  Sender: FDA-Public Use
  Company Number: 200518038GDDC

PATIENT
  Age: 19 Year
  Sex: Male

DRUGS (3)
  1. KETEK [Suspect]
     Indication: EAR INFECTION
     Route: 048
     Dates: start: 20050910, end: 20050913
  2. DESELEX [Concomitant]
     Indication: EAR INFECTION
     Route: 048
     Dates: start: 20050910
  3. SERRAPEPTASE [Concomitant]
     Indication: EAR INFECTION
     Route: 048
     Dates: start: 20050910

REACTIONS (3)
  - DIPLOPIA [None]
  - DIZZINESS [None]
  - VISION BLURRED [None]
